FAERS Safety Report 5376165-4 (Version None)
Quarter: 2007Q2

REPORT INFORMATION
  Report Type: 
  Country: None (occurrence: None)
  Receive Date: 20070628
  Receipt Date: 20070619
  Transmission Date: 20071010
  Serious: Yes (Hospitalization, Disabling)
  Sender: FDA-Public Use
  Company Number: WAES 0605GBR00044

PATIENT
  Age: 81 Year
  Sex: Female

DRUGS (12)
  1. COZAAR [Suspect]
     Indication: CARDIAC FAILURE CONGESTIVE
     Route: 048
     Dates: start: 20031105
  2. ACETAMINOPHEN [Concomitant]
  3. ASPIRIN [Concomitant]
  4. BISOPROLOL [Concomitant]
  5. CODEINE PHOSPHATE [Concomitant]
  6. FUROSEMIDE [Concomitant]
  7. LEVOTHYROXINE SODIUM [Concomitant]
  8. OMEPRAZOLE [Concomitant]
  9. RISEDRONATE SODIUM [Concomitant]
  10. SENNA [Concomitant]
  11. SIMVASTATIN [Concomitant]
  12. SPIRONOLACTONE [Concomitant]

REACTIONS (9)
  - BASAL CELL CARCINOMA [None]
  - BLOOD PRESSURE SYSTOLIC INCREASED [None]
  - DIZZINESS [None]
  - DYSPNOEA [None]
  - HYPOTENSION [None]
  - INFLAMMATION [None]
  - POLYMYALGIA RHEUMATICA [None]
  - PYREXIA [None]
  - RENAL IMPAIRMENT [None]
